FAERS Safety Report 7648756-9 (Version None)
Quarter: 2011Q3

REPORT INFORMATION
  Report Type: 
  Country: None (occurrence: None)
  Receive Date: 20110801
  Receipt Date: 20110727
  Transmission Date: 20111222
  Serious: Yes (Hospitalization, Other)
  Sender: FDA-Public Use
  Company Number: PHHO2011JP09992

PATIENT
  Sex: Female
  Weight: 50 kg

DRUGS (9)
  1. BERAPROST SODIUM [Concomitant]
     Dosage: 240 MG, UNK
     Route: 048
     Dates: start: 20100415
  2. WARFARIN [Concomitant]
     Indication: ATRIAL FIBRILLATION
     Dosage: 3 MG, UNK
     Route: 048
     Dates: start: 20101028
  3. LASIX [Concomitant]
     Indication: PULMONARY HYPERTENSION
     Dosage: 40 MG, UNK
     Dates: start: 20070901
  4. ALDACTONE [Concomitant]
     Indication: PULMONARY HYPERTENSION
     Dosage: 25 MG, UNK
     Route: 048
     Dates: start: 20070901
  5. REVATIO [Concomitant]
     Indication: PULMONARY HYPERTENSION
     Dosage: 60 MG, UNK
     Route: 048
     Dates: start: 20100415
  6. DIGOXIN [Concomitant]
     Indication: ATRIAL FIBRILLATION
     Dosage: 0.125 MG, UNK
     Route: 048
     Dates: start: 20110512
  7. FERROUS SULFATE TAB [Concomitant]
     Indication: ANAEMIA
     Dosage: 105 MG, UNK
     Route: 048
     Dates: start: 20110512
  8. GLEEVEC [Suspect]
     Indication: PULMONARY ARTERIAL HYPERTENSION
     Dosage: 400 MG, UNK
     Route: 048
     Dates: start: 20110513, end: 20110606
  9. OXYGEN [Concomitant]
     Indication: PULMONARY HYPERTENSION
     Dosage: UNK
     Dates: start: 20100805

REACTIONS (3)
  - AGRANULOCYTOSIS [None]
  - PLATELET COUNT DECREASED [None]
  - PULMONARY HYPERTENSION [None]
